FAERS Safety Report 5562351-7 (Version None)
Quarter: 2007Q4

REPORT INFORMATION
  Report Type: 
  Country: None (occurrence: None)
  Receive Date: 20071215
  Receipt Date: 20070726
  Transmission Date: 20080405
  Serious: No
  Sender: FDA-Public Use
  Company Number: US-AMGEN-US235949

PATIENT
  Age: 75 Year
  Sex: Male

DRUGS (7)
  1. ARANESP [Suspect]
     Indication: ANAEMIA OF MALIGNANT DISEASE
     Route: 058
     Dates: start: 20070723
  2. LESCOL [Concomitant]
     Route: 065
  3. AMBIEN [Concomitant]
     Route: 065
  4. RITUXAN [Concomitant]
     Route: 065
  5. PREDNISONE [Concomitant]
     Route: 065
  6. CYTOXAN [Concomitant]
     Route: 065
  7. VINCRISTINE [Concomitant]
     Route: 065

REACTIONS (2)
  - ABDOMINAL PAIN [None]
  - SPLENOMEGALY [None]
